FAERS Safety Report 5626585-5 (Version None)
Quarter: 2008Q1

REPORT INFORMATION
  Report Type: 
  Country: None (occurrence: None)
  Receive Date: 20080214
  Receipt Date: 20080201
  Transmission Date: 20080703
  Serious: Yes (Death)
  Sender: FDA-Public Use
  Company Number: DE-RANBAXY-2008RR-12866

PATIENT

DRUGS (1)
  1. METFORMIN BASICS 1000MG [Suspect]
     Dosage: 2 G, QD

REACTIONS (1)
  - LACTIC ACIDOSIS [None]
